FAERS Safety Report 22132249 (Version 1)
Quarter: 2023Q1

REPORT INFORMATION
  Report Type: Spontaneous
  Country: US (occurrence: None)
  Receive Date: 20230322
  Receipt Date: 20230322
  Transmission Date: 20230418
  Serious: Yes (Hospitalization)
  Sender: FDA-Public Use
  Company Number: None

PATIENT
  Age: 71 Year
  Sex: Female
  Weight: 58.56 kg

DRUGS (30)
  1. LENALIDOMIDE [Suspect]
     Active Substance: LENALIDOMIDE
     Indication: Plasma cell myeloma
     Dosage: OTHER FREQUENCY : 3W, 1W OFF;?
     Route: 048
  2. ACYCLOVIR [Concomitant]
     Active Substance: ACYCLOVIR
  3. ATORVASTATIN [Concomitant]
     Active Substance: ATORVASTATIN
  4. BACTRIM DS [Concomitant]
     Active Substance: SULFAMETHOXAZOLE\TRIMETHOPRIM
  5. BUMEX [Concomitant]
     Active Substance: BUMETANIDE
  6. DARZALEX [Concomitant]
     Active Substance: DARATUMUMAB
  7. DEXAMETHASONE [Concomitant]
     Active Substance: DEXAMETHASONE
  8. ESCITALOPRAM [Concomitant]
     Active Substance: ESCITALOPRAM OXALATE
  9. FENTANYL [Concomitant]
     Active Substance: FENTANYL
  10. Transdermal patch [Concomitant]
  11. HYDRALAZINE [Concomitant]
     Active Substance: HYDRALAZINE HYDROCHLORIDE
  12. HYDROMORPHONE [Concomitant]
     Active Substance: HYDROMORPHONE
  13. ISOSORBIDE [Concomitant]
     Active Substance: ISOSORBIDE
  14. Dinitrate [Concomitant]
  15. KEPPRA [Concomitant]
     Active Substance: LEVETIRACETAM
  16. LACTULOSE [Concomitant]
     Active Substance: LACTULOSE
  17. LORAZEPAM [Concomitant]
     Active Substance: LORAZEPAM
  18. METHOCARBAMOL [Concomitant]
     Active Substance: METHOCARBAMOL
  19. METOPROLOL TARTRATE [Concomitant]
     Active Substance: METOPROLOL TARTRATE
  20. MIRALAX [Concomitant]
     Active Substance: POLYETHYLENE GLYCOL 3350
  21. ONDANSETRON [Concomitant]
     Active Substance: ONDANSETRON
  22. POTASSIUM CHLORIDE [Concomitant]
     Active Substance: POTASSIUM CHLORIDE
  23. PROCHLORPERAZINE MALEATE [Concomitant]
     Active Substance: PROCHLORPERAZINE MALEATE
  24. MAGNESIUM OXIDE [Concomitant]
     Active Substance: MAGNESIUM OXIDE
  25. MELATONIN [Concomitant]
     Active Substance: MELATONIN
  26. ASPIRIN [Concomitant]
     Active Substance: ASPIRIN
  27. TRAZODONE [Concomitant]
     Active Substance: TRAZODONE HYDROCHLORIDE
  28. TYLENOL [Concomitant]
     Active Substance: ACETAMINOPHEN
  29. VELCADE [Concomitant]
     Active Substance: BORTEZOMIB
  30. VITAMIN E [Concomitant]
     Active Substance: .ALPHA.-TOCOPHEROL

REACTIONS (2)
  - Sepsis [None]
  - Therapy interrupted [None]
